FAERS Safety Report 11925237 (Version 1)
Quarter: 2016Q1

REPORT INFORMATION
  Report Type: Spontaneous
  Country: US (occurrence: US)
  Receive Date: 20160118
  Receipt Date: 20160118
  Transmission Date: 20160526
  Serious: No
  Sender: FDA-Public Use
  Company Number: US-ASTRAZENECA-2016SE01836

PATIENT
  Age: 838 Month
  Sex: Male
  Weight: 131.5 kg

DRUGS (16)
  1. PRAVASTATIN [Concomitant]
     Active Substance: PRAVASTATIN\PRAVASTATIN SODIUM
     Indication: BLOOD CHOLESTEROL
     Route: 048
  2. POTASSIUM [Concomitant]
     Active Substance: POTASSIUM
     Route: 048
  3. DIAZEPAM. [Concomitant]
     Active Substance: DIAZEPAM
     Route: 048
  4. OMEPRAZOLE. [Suspect]
     Active Substance: OMEPRAZOLE
     Route: 048
  5. VITAMIN D3 [Concomitant]
     Active Substance: CHOLECALCIFEROL
     Indication: DIETARY SUPPLEMENT PRESCRIBING ERROR
     Route: 048
  6. ASPIRIN. [Concomitant]
     Active Substance: ASPIRIN
     Indication: ACUTE CORONARY SYNDROME
     Route: 048
  7. MUCINEX [Concomitant]
     Active Substance: GUAIFENESIN
     Indication: LUNG DISORDER
     Route: 048
  8. MOVANTIK [Suspect]
     Active Substance: NALOXEGOL OXALATE
     Indication: CONSTIPATION
     Route: 048
     Dates: start: 201509
  9. PLAVIX [Concomitant]
     Active Substance: CLOPIDOGREL BISULFATE
     Indication: BLOOD CHOLESTEROL INCREASED
     Route: 048
  10. OFLOXACIN. [Concomitant]
     Active Substance: OFLOXACIN
     Indication: EYE DISORDER
     Route: 047
  11. ALBUTEROL. [Concomitant]
     Active Substance: ALBUTEROL
     Route: 055
  12. MOVANTIK [Suspect]
     Active Substance: NALOXEGOL OXALATE
     Indication: CONSTIPATION
     Route: 048
     Dates: start: 201510
  13. FLUTICASONE PROPIONATE. [Concomitant]
     Active Substance: FLUTICASONE PROPIONATE
     Indication: NASAL DISORDER
     Route: 045
  14. METRONIDAZOLE. [Concomitant]
     Active Substance: METRONIDAZOLE
     Indication: RASH
  15. PREDINFOLOLE [Concomitant]
     Indication: CATARACT
     Route: 047
     Dates: start: 20151211
  16. NYSTATIN. [Concomitant]
     Active Substance: NYSTATIN
     Route: 061

REACTIONS (3)
  - Diarrhoea [Unknown]
  - Drug ineffective [Unknown]
  - Intentional product misuse [Unknown]

NARRATIVE: CASE EVENT DATE: 201509
